FAERS Safety Report 9278235 (Version 1)
Quarter: 2013Q2

REPORT INFORMATION
  Report Type: Spontaneous
  Country: US (occurrence: None)
  Receive Date: 20130506
  Receipt Date: 20130506
  Transmission Date: 20140414
  Serious: Yes (Other)
  Sender: FDA-Public Use
  Company Number: None

PATIENT
  Age: 12 Year
  Sex: Male
  Weight: 46.5 kg

DRUGS (14)
  1. METHOTREXATE [Suspect]
     Indication: ACUTE LYMPHOCYTIC LEUKAEMIA
     Dates: start: 20130404, end: 20130404
  2. ACETAMINOPHEN SOLN [Concomitant]
  3. IBUPROFEN [Concomitant]
  4. LIDOCAINE [Concomitant]
  5. IMATINIB [Concomitant]
  6. ONDANSETRON [Concomitant]
  7. SOD BICARBONATE [Concomitant]
  8. PROPOFOL [Concomitant]
  9. CHLORHEXIDINE [Concomitant]
  10. NYSTATIN [Concomitant]
  11. DOCUSATE [Concomitant]
  12. DIPHENHYDRAMINE [Concomitant]
  13. FUROSEMIDE [Concomitant]
  14. LEUCOVORIN [Concomitant]

REACTIONS (2)
  - Blood creatinine increased [None]
  - Drug level above therapeutic [None]
